FAERS Safety Report 11376068 (Version 2)
Quarter: 2020Q3

REPORT INFORMATION
  Report Type: Spontaneous
  Country: GB (occurrence: GB)
  Receive Date: 20150813
  Receipt Date: 20151009
  Transmission Date: 20201105
  Serious: Yes (Death)
  Sender: FDA-Public Use
  Company Number: GB-ELI_LILLY_AND_COMPANY-GB201508003570

PATIENT
  Sex: Male
  Weight: 72.8 kg

DRUGS (12)
  1. CEDIRANIB. [Suspect]
     Active Substance: CEDIRANIB
     Indication: BILE DUCT CANCER
     Dosage: 20 MG, CYCLICAL
     Route: 048
     Dates: start: 20121003, end: 20130201
  2. ORAMORPH [Concomitant]
     Active Substance: MORPHINE SULFATE
     Indication: PAIN
     Dosage: 20 MG, BID
     Route: 048
     Dates: start: 20130201, end: 20130201
  3. ORAMORPH [Concomitant]
     Active Substance: MORPHINE SULFATE
     Dosage: UNK UNK, PRN
     Route: 048
     Dates: start: 20120702, end: 20130204
  4. SIMVASTATIN. [Concomitant]
     Active Substance: SIMVASTATIN
     Indication: BLOOD CHOLESTEROL INCREASED
     Dosage: 40 MG, QD
     Route: 048
     Dates: end: 20130204
  5. BUSCOPAN [Concomitant]
     Active Substance: BUTYLSCOPOLAMINE BROMIDE
     Indication: ABDOMINAL DISCOMFORT
     Dosage: 10 MG, BID
     Route: 048
     Dates: start: 20121114, end: 20130204
  6. GEMCITABINE HYDROCHLORIDE. [Suspect]
     Active Substance: GEMCITABINE HYDROCHLORIDE
     Indication: BILE DUCT CANCER
     Dosage: 1000 MG/M2, CYCLICAL
     Route: 042
     Dates: start: 20121003, end: 20130116
  7. OMEPRAZOLE. [Concomitant]
     Active Substance: OMEPRAZOLE
     Indication: REFLUX GASTRITIS
     Dosage: 20 MG, QD
     Route: 048
     Dates: start: 20120702, end: 20130204
  8. CREON [Concomitant]
     Active Substance: PANCRELIPASE AMYLASE\PANCRELIPASE LIPASE\PANCRELIPASE PROTEASE
     Indication: PANCREATIC CARCINOMA
     Dosage: 40000 IU, PRN
     Route: 048
     Dates: start: 20120702, end: 20130204
  9. DOMPERIDONE [Concomitant]
     Active Substance: DOMPERIDONE
     Indication: NAUSEA
     Dosage: 10 MG, QID
     Route: 048
     Dates: start: 20120702, end: 20130201
  10. RAMIPRIL. [Concomitant]
     Active Substance: RAMIPRIL
     Indication: HYPERTENSION
     Dosage: 10 MG, QD
     Route: 048
     Dates: end: 20130204
  11. CISPLATINE [Suspect]
     Active Substance: CISPLATIN
     Indication: BILE DUCT CANCER
     Dosage: 25 MG/M2, CYCLICAL
     Route: 042
     Dates: start: 20121003, end: 20130116
  12. COCODAMOL [Concomitant]
     Active Substance: ACETAMINOPHEN\CODEINE PHOSPHATE
     Indication: PAIN
     Dosage: 1000 MG, QID
     Route: 048
     Dates: start: 20120702, end: 20130204

REACTIONS (2)
  - Neoplasm progression [Fatal]
  - Gastric haemorrhage [Fatal]
